FAERS Safety Report 22046172 (Version 1)
Quarter: 2023Q1

REPORT INFORMATION
  Report Type: Spontaneous
  Country: US (occurrence: US)
  Receive Date: 20230228
  Receipt Date: 20230228
  Transmission Date: 20230418
  Serious: No
  Sender: FDA-Public Use
  Company Number: US-KYOWAKIRIN-2023BKK003003

PATIENT

DRUGS (2)
  1. CRYSVITA [Suspect]
     Active Substance: BUROSUMAB-TWZA
     Indication: Hereditary hypophosphataemic rickets
     Dosage: 80 MG (STRENGTH 20 AND 30 MG/ML COMBINED TO ACHIEVE DOSE OF 80 MG) 1X/2 WEEKS
     Route: 058
     Dates: start: 20221121
  2. CRYSVITA [Suspect]
     Active Substance: BUROSUMAB-TWZA
     Indication: Hereditary hypophosphataemic rickets
     Dosage: 80 MG (STRENGTH 20 AND 30 MG/ML COMBINED TO ACHIEVE DOSE OF 80 MG) 1X/2 WEEKS
     Route: 058
     Dates: start: 20221121

REACTIONS (1)
  - Inappropriate schedule of product administration [Unknown]

NARRATIVE: CASE EVENT DATE: 20230223
